FAERS Safety Report 7427919-1 (Version None)
Quarter: 2011Q2

REPORT INFORMATION
  Report Type: 
  Country: None (occurrence: None)
  Receive Date: 20110421
  Receipt Date: 20110325
  Transmission Date: 20111010
  Serious: Yes (Hospitalization, Other)
  Sender: FDA-Public Use
  Company Number: US-BAYER-200941061NA

PATIENT
  Age: 19 Year
  Sex: Female
  Weight: 81.633 kg

DRUGS (19)
  1. YASMIN [Suspect]
     Indication: PRODUCT USED FOR UNKNOWN INDICATION
     Dates: start: 20070101
  2. HYDROCODONE [HYDROCODONE] [Concomitant]
  3. ZOLOFT [Concomitant]
     Dosage: 25 MG, QD
     Dates: start: 20090803
  4. ALPRAZOLAM [Concomitant]
     Indication: ANXIETY
     Dosage: UNK
     Dates: start: 20081001, end: 20090401
  5. HYDROMORPHONE [Concomitant]
     Indication: PAIN
     Dosage: UNK
     Dates: start: 20090301, end: 20090501
  6. KLONOPIN [Concomitant]
     Dosage: 1 MG, QD
     Dates: start: 20090803
  7. HYDROCODONE BITARTRATE AND ACETAMINOPHEN [Concomitant]
     Indication: PAIN
     Dosage: UNK
     Dates: start: 20081101, end: 20090601
  8. LORTAB [Concomitant]
  9. ADDERALL 10 [Concomitant]
     Indication: ATTENTION DEFICIT/HYPERACTIVITY DISORDER
     Dosage: 10 MG, QD
     Dates: start: 20081001, end: 20100101
  10. XANAX [Concomitant]
  11. ANTIBIOTICS [Concomitant]
  12. LYRICA [Concomitant]
  13. NAPROXEN [Concomitant]
  14. SERTRALINE [Concomitant]
     Dosage: UNK
     Dates: start: 20081001, end: 20090301
  15. PROMETHAZINE [Concomitant]
     Dosage: UNK
     Dates: start: 20051201, end: 20090301
  16. OCELLA [Suspect]
     Dates: start: 20070101
  17. LOESTRIN FE 1/20 [Concomitant]
     Dosage: UNK
     Dates: end: 20090223
  18. LOESTRIN FE 1/20 [Concomitant]
     Dosage: UNK
     Dates: start: 20090225
  19. CLONAZEPAM [Concomitant]
     Indication: ANXIETY
     Dosage: UNK
     Dates: start: 20081001, end: 20090601

REACTIONS (21)
  - TRAUMATIC LUNG INJURY [None]
  - MUSCLE SPASMS [None]
  - DIVERTICULUM [None]
  - PYELONEPHRITIS [None]
  - RENAL FAILURE [None]
  - PAIN [None]
  - NAUSEA [None]
  - PAIN IN EXTREMITY [None]
  - RENAL COLIC [None]
  - ABDOMINAL PAIN [None]
  - DIARRHOEA [None]
  - COLLAPSE OF LUNG [None]
  - GALLBLADDER INJURY [None]
  - VOMITING [None]
  - BACK PAIN [None]
  - FLANK PAIN [None]
  - NEPHROLITHIASIS [None]
  - CALCULUS URETERIC [None]
  - HYDRONEPHROSIS [None]
  - HAEMATEMESIS [None]
  - CHOLECYSTITIS CHRONIC [None]
